FAERS Safety Report 7412274-3 (Version None)
Quarter: 2011Q2

REPORT INFORMATION
  Report Type: 
  Country: None (occurrence: None)
  Receive Date: 20110413
  Receipt Date: 20110318
  Transmission Date: 20111010
  Serious: Yes (Death)
  Sender: FDA-Public Use
  Company Number: FR-ROCHE-766548

PATIENT
  Age: 77 Year
  Sex: Female

DRUGS (8)
  1. FUROSEMIDE [Concomitant]
  2. TAMIFLU [Suspect]
     Dosage: DISCONTINUED
     Route: 048
     Dates: start: 20110203
  3. COUMADIN [Concomitant]
  4. KEPPRA [Concomitant]
  5. ALDACTONE [Concomitant]
  6. ACETAMINOPHEN [Suspect]
     Dosage: DISCONTINUED
     Route: 048
     Dates: start: 20110203
  7. AMIODARONE HCL [Concomitant]
  8. DIFFU K [Concomitant]

REACTIONS (1)
  - HEPATITIS FULMINANT [None]
